FAERS Safety Report 5179591-1 (Version None)
Quarter: 2006Q4

REPORT INFORMATION
  Report Type: 
  Country: None (occurrence: None)
  Receive Date: 20061211
  Receipt Date: 20061128
  Transmission Date: 20070319
  Serious: Yes (Other)
  Sender: FDA-Public Use
  Company Number: 2006146821

PATIENT
  Age: 73 Year
  Sex: Female

DRUGS (5)
  1. CELEBREX [Suspect]
     Indication: RHEUMATOID ARTHRITIS
     Dosage: 400 MG (200 MG, 2 IN 1 D), ORAL
     Route: 048
     Dates: start: 20000101, end: 20061125
  2. SIMVASTATIN [Suspect]
  3. ACETAMINOPHEN W/ CODEINE [Suspect]
  4. AMITRIPTYLINE HCL [Suspect]
  5. DIAZEPAM [Suspect]

REACTIONS (2)
  - ARRHYTHMIA [None]
  - ASTHENIA [None]
